FAERS Safety Report 4663032-4 (Version None)
Quarter: 2005Q2

REPORT INFORMATION
  Report Type: 
  Country: None (occurrence: None)
  Receive Date: 20050506
  Receipt Date: 20041124
  Transmission Date: 20051028
  Serious: Yes (Other)
  Sender: FDA-Public Use
  Company Number: PHEH2004US12706

PATIENT
  Age: 59 Year
  Sex: Female
  Weight: 103 kg

DRUGS (11)
  1. DICLOFENAC SODIUM [Suspect]
     Indication: RHEUMATOID ARTHRITIS
     Dosage: 50 MG, QD, UNK
     Route: 065
  2. ENBREL [Suspect]
     Indication: ANKYLOSING SPONDYLITIS
     Dosage: 25 MG, UNK, SUBCUTANEOUS
     Route: 058
     Dates: start: 20020401
  3. PREDNISONE [Suspect]
  4. FELODIPINE [Suspect]
  5. BISOPROLOL(BISOPROLOL) [Suspect]
  6. CALCIUM CARBONATE(CALCIUM CARBONATE0 [Suspect]
  7. OMEPRAZOLE [Suspect]
  8. TORSEMIDE [Suspect]
  9. FOSAMAX [Suspect]
     Indication: OSTEOPOROSIS
     Dosage: 70 MG, QW, UNK
     Route: 065
  10. BETAHISTINE MESILATE(BETAHISTINE MESILATE) [Suspect]
     Indication: TINNITUS
     Dosage: 12 MG, BID, UNK
     Route: 065
  11. METHOTREXATE [Suspect]
     Dates: end: 20040701

REACTIONS (4)
  - CONDITION AGGRAVATED [None]
  - DRUG INTERACTION [None]
  - GAMMA-GLUTAMYLTRANSFERASE INCREASED [None]
  - RHEUMATOID ARTHRITIS [None]
